FAERS Safety Report 8536508-7 (Version None)
Quarter: 2012Q3

REPORT INFORMATION
  Report Type: 
  Country: None (occurrence: None)
  Receive Date: 20120725
  Receipt Date: 20120724
  Transmission Date: 20120928
  Serious: Yes (Hospitalization)
  Sender: FDA-Public Use
  Company Number: PHHY2012JP029019

PATIENT
  Sex: Male
  Weight: 55 kg

DRUGS (4)
  1. TEGRETOL [Suspect]
     Indication: GLOSSOPHARYNGEAL NEURALGIA
     Dosage: 100 MG, BID
     Route: 048
     Dates: start: 20120123, end: 20120129
  2. TEGRETOL [Suspect]
     Dosage: 350 MG, DAILY
     Route: 048
     Dates: start: 20120312, end: 20120320
  3. MECOBALAMIN [Concomitant]
     Dosage: 1500 UG, UNK
     Route: 048
     Dates: start: 20120130
  4. TEGRETOL [Suspect]
     Dosage: 300 MG, DAILY
     Route: 048
     Dates: start: 20120130, end: 20120311

REACTIONS (16)
  - STEVENS-JOHNSON SYNDROME [None]
  - EPIGASTRIC DISCOMFORT [None]
  - HYPOAESTHESIA [None]
  - HYPOAESTHESIA ORAL [None]
  - PAIN [None]
  - DERMATITIS [None]
  - SENSORY DISTURBANCE [None]
  - ERYTHEMA [None]
  - ERYTHEMA MULTIFORME [None]
  - OEDEMA MOUTH [None]
  - ORAL HERPES [None]
  - GASTRIC ULCER [None]
  - DRUG-INDUCED LIVER INJURY [None]
  - RASH [None]
  - ORAL PAIN [None]
  - DYSPHAGIA [None]
